FAERS Safety Report 13047880 (Version 1)
Quarter: 2016Q4

REPORT INFORMATION
  Report Type: Spontaneous
  Country: US (occurrence: US)
  Receive Date: 20161220
  Receipt Date: 20161220
  Transmission Date: 20170207
  Serious: No
  Sender: FDA-Public Use
  Company Number: US-ALLERGAN-1673756US

PATIENT
  Age: 36 Year
  Sex: Female

DRUGS (1)
  1. LILETTA [Suspect]
     Active Substance: LEVONORGESTREL
     Indication: PRODUCT USED FOR UNKNOWN INDICATION
     Dosage: 52 MG
     Route: 015
     Dates: start: 20161018, end: 20161018

REACTIONS (4)
  - Procedural pain [Unknown]
  - Vomiting [Unknown]
  - Hyperhidrosis [Unknown]
  - Uterine spasm [Unknown]

NARRATIVE: CASE EVENT DATE: 20161018
